FAERS Safety Report 7515892-7 (Version None)
Quarter: 2011Q2

REPORT INFORMATION
  Report Type: 
  Country: None (occurrence: None)
  Receive Date: 20110601
  Receipt Date: 20110526
  Transmission Date: 20111010
  Serious: No
  Sender: FDA-Public Use
  Company Number: US-PFIZER INC-2010173167

PATIENT
  Sex: Male
  Weight: 69.841 kg

DRUGS (5)
  1. CHANTIX [Suspect]
     Dosage: 0.5 MG, 1X/DAY
     Route: 048
     Dates: start: 20101121, end: 20101101
  2. CHANTIX [Suspect]
     Dosage: 1 MG, 2X/DAY
     Dates: start: 20110501
  3. CHANTIX [Suspect]
     Indication: SMOKING CESSATION THERAPY
     Dosage: 0.5 MG, 1X/DAY
     Dates: start: 20080101
  4. CHANTIX [Suspect]
     Dosage: 1 MG, 2X/DAY
     Route: 048
     Dates: start: 20101101
  5. CHANTIX [Suspect]
     Dosage: UNK
     Dates: start: 20110501, end: 20110501

REACTIONS (5)
  - ABNORMAL DREAMS [None]
  - MIDDLE INSOMNIA [None]
  - UNDERWEIGHT [None]
  - WEIGHT INCREASED [None]
  - DECREASED APPETITE [None]
